FAERS Safety Report 7660108-4 (Version None)
Quarter: 2011Q3

REPORT INFORMATION
  Report Type: 
  Country: None (occurrence: None)
  Receive Date: 20110805
  Receipt Date: 20110723
  Transmission Date: 20111222
  Serious: Yes (Other)
  Sender: FDA-Public Use
  Company Number: PHHY2011IN68642

PATIENT
  Age: 30 Year
  Sex: Male

DRUGS (4)
  1. CYCLOSPORINE [Suspect]
     Indication: RENAL TRANSPLANT
     Dosage: 175 MG, BID
  2. BASILIXIMAB [Suspect]
     Indication: RENAL TRANSPLANT
     Dosage: 20 MG, ONCE/SINGLE
  3. PREDNISONE [Concomitant]
     Indication: RENAL TRANSPLANT
     Dosage: 35 MG, QD
  4. PREDNISONE [Concomitant]
     Dosage: 5 MG, UNK

REACTIONS (8)
  - RED BLOOD CELL COUNT INCREASED [None]
  - KIDNEY TRANSPLANT REJECTION [None]
  - COMPLICATIONS OF TRANSPLANTED KIDNEY [None]
  - BLOOD CREATININE INCREASED [None]
  - WHITE BLOOD CELL COUNT DECREASED [None]
  - HAEMOGLOBIN DECREASED [None]
  - POLYCYTHAEMIA [None]
  - NEPHROPATHY TOXIC [None]
